FAERS Safety Report 4333046-2 (Version None)
Quarter: 2004Q2

REPORT INFORMATION
  Report Type: 
  Country: None (occurrence: None)
  Receive Date: 20040406
  Receipt Date: 20040323
  Transmission Date: 20050107
  Serious: Yes (Hospitalization)
  Sender: FDA-Public Use
  Company Number: ES-ROCHE-362497

PATIENT
  Age: 59 Year
  Sex: Female
  Weight: 54 kg

DRUGS (9)
  1. MYCOPHENOLATE MOFETIL [Suspect]
     Route: 048
     Dates: start: 20040301
  2. CYCLOSPORINE [Suspect]
     Route: 048
     Dates: start: 20040301
  3. PREDNISONE [Suspect]
     Route: 048
     Dates: start: 20040301
  4. ISONIAZID [Concomitant]
     Route: 048
     Dates: start: 20040302
  5. TRIMETHOPRIM-SULFAMETHOXAZOLE [Concomitant]
     Route: 048
     Dates: start: 20040302
  6. VALGANCICLOVIR [Concomitant]
     Route: 048
     Dates: start: 20040302
  7. RANITIDINE [Concomitant]
     Route: 048
     Dates: start: 20040302
  8. ASPIRIN [Concomitant]
     Route: 048
     Dates: start: 20040302
  9. PERINDOPRIL [Concomitant]
     Route: 048
     Dates: start: 20040305, end: 20040316

REACTIONS (3)
  - BLOOD CREATININE INCREASED [None]
  - GRAFT DYSFUNCTION [None]
  - KIDNEY TRANSPLANT REJECTION [None]
